FAERS Safety Report 16411394 (Version 3)
Quarter: 2019Q2

REPORT INFORMATION
  Report Type: Spontaneous
  Country: DE (occurrence: DE)
  Receive Date: 20190610
  Receipt Date: 20190621
  Transmission Date: 20190711
  Serious: Yes (Death, Hospitalization)
  Sender: FDA-Public Use
  Company Number: DE-MYLANLABS-2019M1054203

PATIENT
  Age: 65 Year
  Sex: Male

DRUGS (2)
  1. CORTISONE [Concomitant]
     Active Substance: CORTISONE\HYDROCORTISONE
     Indication: PRODUCT USED FOR UNKNOWN INDICATION
     Dosage: UNK
     Route: 065
  2. METHOTREXATE. [Suspect]
     Active Substance: METHOTREXATE
     Indication: RHEUMATOID ARTHRITIS
     Dosage: 10 MG, 1X/DAY
     Route: 048
     Dates: start: 1992, end: 1992

REACTIONS (9)
  - Multiple organ dysfunction syndrome [Fatal]
  - Accidental overdose [Not Recovered/Not Resolved]
  - Medication error [Fatal]
  - Bone marrow failure [Fatal]
  - Product prescribing error [Fatal]
  - Stomatitis [Fatal]
  - Diarrhoea [Fatal]
  - Sepsis [Fatal]
  - Overdose [Fatal]
